FAERS Safety Report 6233725-6 (Version None)
Quarter: 2009Q2

REPORT INFORMATION
  Report Type: 
  Country: None (occurrence: None)
  Receive Date: 20090617
  Receipt Date: 20090611
  Transmission Date: 20091009
  Serious: Yes (Other)
  Sender: FDA-Public Use
  Company Number: US-ELI_LILLY_AND_COMPANY-US200906002845

PATIENT
  Sex: Female

DRUGS (6)
  1. HUMULIN 70/30 [Suspect]
     Dosage: UNK, UNK
     Dates: start: 20081201
  2. DIOVAN [Concomitant]
  3. METOPROLOL SUCCINATE [Concomitant]
  4. FUROSEMIDE [Concomitant]
  5. HYDRALAZINE HCL [Concomitant]
  6. LANTUS [Concomitant]

REACTIONS (2)
  - DYSPNOEA [None]
  - SKIN CANCER [None]
